FAERS Safety Report 21374138 (Version 1)
Quarter: 2022Q3

REPORT INFORMATION
  Report Type: Report from Study
  Country: EG (occurrence: EG)
  Receive Date: 20220926
  Receipt Date: 20220926
  Transmission Date: 20221027
  Serious: Yes (Other)
  Sender: FDA-Public Use
  Company Number: EG-NOVARTISPH-NVSC2022EG216290

PATIENT
  Age: 24 Year
  Sex: Female

DRUGS (2)
  1. GILENYA [Suspect]
     Active Substance: FINGOLIMOD HYDROCHLORIDE
     Indication: Multiple sclerosis
     Dosage: 0.5 MG, QD
     Route: 048
     Dates: start: 201312, end: 201412
  2. METHOTREXATE [Suspect]
     Active Substance: METHOTREXATE
     Indication: Multiple sclerosis
     Dosage: UNK(CONC. 0.5  MG TILL JUNE-2016 THEN CONC. 0.7 MG TILL JUNE-2017)
     Route: 065
     Dates: start: 2016, end: 201706

REACTIONS (6)
  - Limb discomfort [Recovering/Resolving]
  - Spinal deformity [Recovering/Resolving]
  - Gait disturbance [Recovering/Resolving]
  - Multiple sclerosis relapse [Recovered/Resolved]
  - Vision blurred [Recovered/Resolved]
  - Drug ineffective [Unknown]

NARRATIVE: CASE EVENT DATE: 20140301
